FAERS Safety Report 14044061 (Version 1)
Quarter: 2017Q4

REPORT INFORMATION
  Report Type: Spontaneous
  Country: US (occurrence: US)
  Receive Date: 20171004
  Receipt Date: 20171004
  Transmission Date: 20180321
  Serious: Yes (Disabling)
  Sender: FDA-Public Use
  Company Number: None

PATIENT
  Age: 7 Year
  Sex: Male
  Weight: 21.6 kg

DRUGS (1)
  1. MONTELUKAST [Suspect]
     Active Substance: MONTELUKAST SODIUM
     Indication: ASTHMA
     Route: 048
     Dates: start: 20140130, end: 20170915

REACTIONS (6)
  - Anxiety [None]
  - Fear [None]
  - Withdrawal syndrome [None]
  - Aggression [None]
  - Epistaxis [None]
  - Abnormal behaviour [None]

NARRATIVE: CASE EVENT DATE: 20170907
